FAERS Safety Report 17035143 (Version 1)
Quarter: 2019Q4

REPORT INFORMATION
  Report Type: Spontaneous
  Country: GB (occurrence: GB)
  Receive Date: 20191115
  Receipt Date: 20191115
  Transmission Date: 20200122
  Serious: Yes (Life-Threatening)
  Sender: FDA-Public Use
  Company Number: GB-TEVA-2019-GB-1136915

PATIENT
  Age: 5 Day
  Sex: Female
  Weight: 1.07 kg

DRUGS (7)
  1. CAFFEINE CITRATE. [Concomitant]
     Active Substance: CAFFEINE CITRATE
  2. BENZYLPENICILLIN SODIUM [Concomitant]
     Active Substance: PENICILLIN G SODIUM
  3. VANCOMYCIN HYDROCHLORIDE. [Suspect]
     Active Substance: VANCOMYCIN HYDROCHLORIDE
     Indication: SEPSIS
     Dosage: 30MG/KG/DAY
     Route: 042
     Dates: start: 20171027, end: 20171027
  4. CUROSURF [Concomitant]
     Active Substance: PORACTANT ALFA
  5. GENTAMICIN SULFATE. [Concomitant]
     Active Substance: GENTAMICIN SULFATE
  6. BETAMETHASONE. [Concomitant]
     Active Substance: BETAMETHASONE
     Dosage: MUM HAD PRIOR TO DELIVERY
     Route: 064
  7. KONAKION MM [Concomitant]
     Active Substance: PHYTONADIONE

REACTIONS (2)
  - Neonatal anuria [Unknown]
  - Acute kidney injury [Recovered/Resolved]

NARRATIVE: CASE EVENT DATE: 20171027
